FAERS Safety Report 8956010 (Version 1)
Quarter: 2012Q4

REPORT INFORMATION
  Report Type: Report from Study
  Country: GB (occurrence: GB)
  Receive Date: 20121210
  Receipt Date: 20121210
  Transmission Date: 20130627
  Serious: Yes (Other)
  Sender: FDA-Public Use
  Company Number: GB-BAXTER-2012BAX025800

PATIENT
  Age: 69 Year
  Sex: Female

DRUGS (5)
  1. CYCLOPHOSPHAMIDE INJECTION 1G [Suspect]
     Indication: CANCER
     Route: 065
  2. DOXORUBICIN [Suspect]
     Indication: DRUG USE FOR UNKNOWN INDICATION
     Route: 065
  3. ONCOVIN [Suspect]
     Indication: CANCER
     Route: 065
  4. PREDNISOLONE [Suspect]
     Indication: CANCER
     Route: 065
  5. RITUXIMAB [Suspect]
     Indication: CANCER
     Route: 065

REACTIONS (9)
  - Decreased appetite [Recovered/Resolved]
  - Diarrhoea [Recovered/Resolved]
  - Irritable bowel syndrome [Recovered/Resolved]
  - Rectal haemorrhage [Recovered/Resolved]
  - Malaise [Recovered/Resolved]
  - Oedema peripheral [Recovered/Resolved]
  - Syncope [Recovered/Resolved]
  - Fluid retention [Recovered/Resolved]
  - Peripheral nerve injury [Recovered/Resolved]
